FAERS Safety Report 8407991-2 (Version None)
Quarter: 2012Q2

REPORT INFORMATION
  Report Type: 
  Country: None (occurrence: None)
  Receive Date: 20120604
  Receipt Date: 20120531
  Transmission Date: 20120825
  Serious: Yes (Hospitalization, Disabling, Other)
  Sender: FDA-Public Use
  Company Number: US-MERCK-1109USA03018

PATIENT
  Age: 67 Year
  Sex: Female
  Weight: 66 kg

DRUGS (5)
  1. FOSAMAX [Suspect]
     Indication: OSTEOPOROSIS
     Route: 048
     Dates: start: 19950101, end: 20110101
  2. FOSAMAX [Suspect]
     Route: 048
     Dates: start: 20091201, end: 20100101
  3. ALENDRONATE SODIUM [Suspect]
     Indication: OSTEOPOROSIS
     Route: 048
  4. FOSAMAX [Suspect]
     Route: 048
     Dates: start: 19980123, end: 20090101
  5. FOSAMAX [Suspect]
     Route: 048
     Dates: start: 20020101

REACTIONS (55)
  - DIZZINESS [None]
  - BRONCHIECTASIS [None]
  - GROIN PAIN [None]
  - GASTROENTERITIS VIRAL [None]
  - FALL [None]
  - EMPHYSEMA [None]
  - PULMONARY FIBROSIS [None]
  - SKIN LESION [None]
  - TRICUSPID VALVE INCOMPETENCE [None]
  - PULMONARY MASS [None]
  - ARTHRALGIA [None]
  - HYPOTHYROIDISM [None]
  - CONTUSION [None]
  - FEMUR FRACTURE [None]
  - LOW TURNOVER OSTEOPATHY [None]
  - ANXIETY [None]
  - ATELECTASIS [None]
  - PLEURAL FIBROSIS [None]
  - INTERVERTEBRAL DISC DEGENERATION [None]
  - INNER EAR DISORDER [None]
  - BRONCHITIS [None]
  - SPINAL OSTEOARTHRITIS [None]
  - SYNCOPE [None]
  - GASTRITIS [None]
  - FRACTURE [None]
  - TREMOR [None]
  - SWELLING [None]
  - RIB FRACTURE [None]
  - ADVERSE EVENT [None]
  - OVARIAN MASS [None]
  - DIASTOLIC DYSFUNCTION [None]
  - ROAD TRAFFIC ACCIDENT [None]
  - LUNG INFILTRATION [None]
  - URINARY TRACT INFECTION [None]
  - CHONDROCALCINOSIS PYROPHOSPHATE [None]
  - OSTEOARTHRITIS [None]
  - BLOOD PRESSURE INCREASED [None]
  - TOXICITY TO VARIOUS AGENTS [None]
  - LUNG DISORDER [None]
  - VERTIGO [None]
  - PULMONARY ARTERIAL PRESSURE INCREASED [None]
  - HYPERTENSION [None]
  - HYPERLIPIDAEMIA [None]
  - CHRONIC OBSTRUCTIVE PULMONARY DISEASE [None]
  - LUNG NEOPLASM [None]
  - VIRAL LABYRINTHITIS [None]
  - SPINAL COLUMN STENOSIS [None]
  - PARAESTHESIA [None]
  - DILATATION ATRIAL [None]
  - ADVERSE DRUG REACTION [None]
  - HAEMATOMA [None]
  - OSTEOPENIA [None]
  - OEDEMA PERIPHERAL [None]
  - NOCTURIA [None]
  - COUGH [None]
